FAERS Safety Report 5994166-X (Version None)
Quarter: 2008Q4

REPORT INFORMATION
  Report Type: 
  Country: None (occurrence: None)
  Receive Date: 20081212
  Receipt Date: 20080919
  Transmission Date: 20090506
  Serious: No
  Sender: FDA-Public Use
  Company Number: US-ABBOTT-08P-163-0473771-00

PATIENT
  Sex: Female

DRUGS (7)
  1. HUMIRA [Suspect]
     Indication: PSORIASIS
     Route: 050
     Dates: start: 20080102, end: 20080820
  2. ATORVASTATIN CALCIUM [Concomitant]
     Indication: BLOOD CHOLESTEROL
     Route: 048
  3. LOTREL [Concomitant]
     Indication: BLOOD PRESSURE
     Route: 048
  4. HYZAAR [Concomitant]
     Indication: BLOOD PRESSURE
     Route: 048
  5. METAPROLOL [Concomitant]
     Indication: BLOOD PRESSURE
     Route: 048
  6. METFORMIN HCL [Concomitant]
     Indication: BLOOD GLUCOSE ABNORMAL
     Route: 048
  7. TECLANEX [Concomitant]
     Indication: STEROID THERAPY
     Route: 061

REACTIONS (3)
  - DERMATITIS [None]
  - DRUG ERUPTION [None]
  - LEUKOCYTOCLASTIC VASCULITIS [None]
